FAERS Safety Report 8594171-3 (Version None)
Quarter: 2012Q3

REPORT INFORMATION
  Report Type: 
  Country: None (occurrence: None)
  Receive Date: 20120814
  Receipt Date: 20120731
  Transmission Date: 20120928
  Serious: Yes (Hospitalization)
  Sender: FDA-Public Use
  Company Number: CHPA2012US017406

PATIENT
  Age: 59 Year
  Sex: Female

DRUGS (2)
  1. METAMUCIL-2 [Concomitant]
     Dosage: UNK
  2. BENEFIBER W/ WHEAT DEXTRIN [Suspect]
     Indication: CONSTIPATION
     Dosage: 2 TSP, TID

REACTIONS (2)
  - DIVERTICULITIS [None]
  - OFF LABEL USE [None]
